FAERS Safety Report 18235097 (Version 3)
Quarter: 2020Q4

REPORT INFORMATION
  Report Type: Spontaneous
  Country: JP (occurrence: JP)
  Receive Date: 20200904
  Receipt Date: 20201116
  Transmission Date: 20210113
  Serious: Yes (Life-Threatening, Hospitalization, Other)
  Sender: FDA-Public Use
  Company Number: JP-009507513-2008JPN001764J

PATIENT
  Age: 75 Year
  Sex: Male
  Weight: 60 kg

DRUGS (19)
  1. PROPOFOL. [Concomitant]
     Active Substance: PROPOFOL
     Dosage: 50 MILLIGRAM, QD
     Route: 042
     Dates: start: 20180814, end: 20180814
  2. POPSCAINE [Concomitant]
     Active Substance: LEVOBUPIVACAINE HYDROCHLORIDE
     Indication: EPIDURAL ANAESTHESIA
     Dosage: 6 MILLILITER, QD
     Route: 008
     Dates: start: 20200814, end: 20200814
  3. BRIDION [Suspect]
     Active Substance: SUGAMMADEX
     Indication: ANAESTHESIA PROCEDURE
  4. POPSCAINE [Concomitant]
     Active Substance: LEVOBUPIVACAINE HYDROCHLORIDE
     Dosage: 3 MILLILITER, QD
     Route: 008
     Dates: start: 20200814, end: 20200814
  5. TAMSULOSIN HYDROCHLORIDE OD [Concomitant]
     Active Substance: TAMSULOSIN HYDROCHLORIDE
     Indication: BENIGN PROSTATIC HYPERPLASIA
     Dosage: UNK
     Route: 048
     Dates: start: 201812
  6. PROPOFOL. [Concomitant]
     Active Substance: PROPOFOL
     Dosage: 50 MILLIGRAM, QD
     Route: 042
     Dates: start: 20180814, end: 20180814
  7. FENTANYL. [Concomitant]
     Active Substance: FENTANYL
     Indication: ANAESTHESIA PROCEDURE
     Dosage: 0.1 MILLIGRAM, QD
     Route: 042
     Dates: start: 20200814, end: 20200814
  8. EPHEDRIN [Concomitant]
     Active Substance: EPHEDRINE HYDROCHLORIDE
     Indication: BLOOD PRESSURE INCREASED
     Dosage: 8 MILLIGRAM, BID
     Route: 042
     Dates: start: 20200814, end: 20200814
  9. PROPOFOL. [Concomitant]
     Active Substance: PROPOFOL
     Dosage: 30 MILLIGRAM, QD
     Route: 042
     Dates: start: 20180814, end: 20180814
  10. CEFOTIAM [Concomitant]
     Active Substance: CEFOTIAM
     Indication: ANTIBIOTIC PROPHYLAXIS
     Dosage: 1 GRAM, QD
     Route: 042
     Dates: start: 20200814, end: 20200814
  11. AVOLVE [Concomitant]
     Active Substance: DUTASTERIDE
     Indication: BENIGN PROSTATIC HYPERPLASIA
     Dosage: UNK
     Route: 048
     Dates: start: 20191002
  12. ESLAX INTRAVENOUS 25MG/2.5ML [Suspect]
     Active Substance: ROCURONIUM BROMIDE
     Indication: NEUROMUSCULAR BLOCKING THERAPY
     Dosage: 50, QD
     Route: 042
     Dates: start: 20200814, end: 20200814
  13. ESLAX INTRAVENOUS 25MG/2.5ML [Suspect]
     Active Substance: ROCURONIUM BROMIDE
     Dosage: 10, QD
     Route: 042
     Dates: start: 20200814, end: 20200814
  14. PROPOFOL. [Concomitant]
     Active Substance: PROPOFOL
     Dosage: 20 MILLIGRAM, QD
     Route: 042
     Dates: start: 20180814, end: 20180814
  15. SEVOFLURANE. [Concomitant]
     Active Substance: SEVOFLURANE
     Indication: ANAESTHESIA PROCEDURE
     Dosage: UNK
     Dates: start: 20200814, end: 20200814
  16. BRIDION [Suspect]
     Active Substance: SUGAMMADEX
     Indication: NEUROMUSCULAR BLOCKADE REVERSAL
     Dosage: 200 MILLIGRAM, QD
     Route: 042
     Dates: start: 20200814, end: 20200814
  17. PROPOFOL. [Concomitant]
     Active Substance: PROPOFOL
     Indication: ANAESTHESIA PROCEDURE
     Dosage: 100 MILLIGRAM, QD
     Route: 042
     Dates: start: 20180814, end: 20180814
  18. PROPOFOL. [Concomitant]
     Active Substance: PROPOFOL
     Dosage: 50 MILLIGRAM, QD
     Route: 042
     Dates: start: 20180814, end: 20180814
  19. TERAMURO [Concomitant]
     Indication: HYPERTENSION
     Dosage: UNK
     Route: 048

REACTIONS (1)
  - Arteriospasm coronary [Recovered/Resolved]

NARRATIVE: CASE EVENT DATE: 20200814
